FAERS Safety Report 6850216-X (Version None)
Quarter: 2010Q3

REPORT INFORMATION
  Report Type: 
  Country: None (occurrence: None)
  Receive Date: 20100716
  Receipt Date: 20071010
  Transmission Date: 20110219
  Serious: No
  Sender: FDA-Public Use
  Company Number: US-PFIZER INC-2007086831

PATIENT
  Sex: Female

DRUGS (5)
  1. CHANTIX [Suspect]
     Indication: SMOKING CESSATION THERAPY
     Dates: start: 20071008
  2. SEROQUEL [Suspect]
     Indication: DEPRESSION
     Dates: end: 20071001
  3. LASIX [Concomitant]
     Indication: FLUID RETENTION
  4. FAMOTIDINE [Concomitant]
     Indication: ABDOMINAL DISCOMFORT
  5. LOVASTATIN [Concomitant]

REACTIONS (3)
  - INAPPROPRIATE SCHEDULE OF DRUG ADMINISTRATION [None]
  - NAUSEA [None]
  - WEIGHT INCREASED [None]
